FAERS Safety Report 9702508 (Version 1)
Quarter: 2013Q4

REPORT INFORMATION
  Report Type: Spontaneous
  Country: GB (occurrence: GB)
  Receive Date: 20131121
  Receipt Date: 20131121
  Transmission Date: 20140711
  Serious: Yes (Hospitalization)
  Sender: FDA-Public Use
  Company Number: GB-BANPHARM-20131881

PATIENT
  Age: 53 Year
  Sex: Female

DRUGS (4)
  1. IBUPROFEN UNKNOWN PRODUCT [Suspect]
     Indication: PAIN
     Route: 048
     Dates: start: 20131009, end: 20131010
  2. NAPROXEN UNKNOWN PRODUCT [Suspect]
     Indication: PAIN
     Dosage: 500 MG, BID,
     Dates: start: 20131010, end: 20131024
  3. CODEINE [Concomitant]
  4. PARACETAMOL [Concomitant]

REACTIONS (3)
  - Duodenal ulcer [Recovering/Resolving]
  - Nausea [Unknown]
  - Vomiting [Unknown]
